FAERS Safety Report 25139766 (Version 1)
Quarter: 2025Q1

REPORT INFORMATION
  Report Type: Report from Study
  Country: IT (occurrence: IT)
  Receive Date: 20250331
  Receipt Date: 20250331
  Transmission Date: 20250409
  Serious: Yes (Life-Threatening, Hospitalization)
  Sender: ACCORD
  Company Number: None

PATIENT
  Age: 64 Year
  Sex: Female

DRUGS (2)
  1. CAPECITABINE [Suspect]
     Active Substance: CAPECITABINE
     Indication: Chemotherapy
     Dates: start: 20250103, end: 20250112
  2. BRIVUDINE [Suspect]
     Active Substance: BRIVUDINE
     Indication: Product used for unknown indication
     Dates: start: 20241224, end: 20241231

REACTIONS (2)
  - Haematotoxicity [Recovered/Resolved]
  - Mucosal toxicity [Recovered/Resolved]

NARRATIVE: CASE EVENT DATE: 20250112
